FAERS Safety Report 8430154-1 (Version None)
Quarter: 2012Q2

REPORT INFORMATION
  Report Type: 
  Country: None (occurrence: None)
  Receive Date: 20120612
  Receipt Date: 20120605
  Transmission Date: 20120825
  Serious: Yes (Other)
  Sender: FDA-Public Use
  Company Number: US-JNJFOC-20120603813

PATIENT
  Age: 63 Year
  Sex: Female
  Weight: 86.64 kg

DRUGS (12)
  1. ARTIFICIAL TEARS NOS [Concomitant]
     Indication: CATARACT OPERATION
     Dosage: USES DAILY STARTED 3-4 MONTHS AGO
     Route: 065
     Dates: start: 20120101
  2. CALCIUM AND VIT D [Concomitant]
     Indication: MEDICAL DIET
     Dosage: STARTED YEARS AGO
     Route: 065
  3. ALL OTHER THERAPEUTIC PRODUCTS [Concomitant]
     Indication: MEDICAL DIET
     Dosage: TAKEN DAILY STARTED ONE YEAR AGO
     Route: 065
  4. HYDROCHLOROTHIAZIDE [Concomitant]
     Indication: OEDEMA PERIPHERAL
     Dosage: STARTED YEARS AGO
     Route: 065
  5. MULTI-VITAMINS [Concomitant]
     Indication: MEDICAL DIET
     Dosage: STARTED YEARS AGO
     Route: 065
  6. ACETAMINOPHEN [Suspect]
     Route: 048
  7. VOLTAREN [Suspect]
     Indication: PAIN
     Dosage: TAKEN AS NEEDED, STARTED 9 MONTHS AGO
     Route: 065
     Dates: start: 20110101
  8. ASPIRIN [Concomitant]
     Indication: THROMBOSIS
     Dosage: 2 TABS, TWO TIMES DAILY STARTED YEARS AGO
     Route: 065
  9. ACETAMINOPHEN [Suspect]
     Indication: PAIN
     Dosage: 2 GELCAPS EVERY 6-8 HOURS OFF AND ON SINCE OCT2011
     Route: 048
     Dates: start: 20111001
  10. NAPROXEN [Suspect]
     Indication: PAIN
     Dosage: STARTED 9 MONTHS AGO. TAKEN AS NEEDED
     Route: 065
     Dates: start: 20110101
  11. DIAZEPAM [Concomitant]
     Indication: ANXIETY
     Dosage: STARTED YEARS AGO. 2.5MG DAILY IN AM AND 5MG DAILY IN AM
     Route: 065
  12. METFORMIN HCL [Suspect]
     Indication: DIABETES MELLITUS
     Dosage: STARTED YEARS AGO
     Route: 065

REACTIONS (1)
  - HEPATIC ENZYME INCREASED [None]
